FAERS Safety Report 8934624 (Version 1)
Quarter: 2012Q4

REPORT INFORMATION
  Report Type: 
  Country: US (occurrence: US)
  Receive Date: 20121129
  Receipt Date: 20121129
  Transmission Date: 20130627
  Serious: Yes (Hospitalization, Congenital Anomaly, Other)
  Sender: FDA-Public Use
  Company Number: US-ELI_LILLY_AND_COMPANY-US201112006845

PATIENT
  Age: 0 Year

DRUGS (1)
  1. PROZAC [Suspect]
     Dosage: UNK UNK, unknown
     Route: 064

REACTIONS (7)
  - Fallot^s tetralogy [Unknown]
  - Congenital pulmonary valve atresia [Unknown]
  - Neonatal respiratory distress syndrome [Unknown]
  - Cardiac murmur [Unknown]
  - Heart disease congenital [Unknown]
  - Congenital cardiovascular anomaly [Unknown]
  - Foetal exposure during pregnancy [Recovered/Resolved]
